FAERS Safety Report 6822968-6 (Version None)
Quarter: 2010Q3

REPORT INFORMATION
  Report Type: 
  Country: None (occurrence: None)
  Receive Date: 20100708
  Receipt Date: 20100702
  Transmission Date: 20110219
  Serious: Yes (Hospitalization)
  Sender: FDA-Public Use
  Company Number: A0868532A

PATIENT
  Age: 47 Year
  Sex: Male
  Weight: 75.8 kg

DRUGS (1)
  1. GW786034 [Suspect]
     Dosage: 800MG PER DAY
     Route: 048
     Dates: start: 20100325

REACTIONS (4)
  - BODY TEMPERATURE INCREASED [None]
  - DYSPNOEA [None]
  - HYPOTENSION [None]
  - PNEUMONITIS [None]
